FAERS Safety Report 19028000 (Version 3)
Quarter: 2021Q3

REPORT INFORMATION
  Report Type: Spontaneous
  Country: US (occurrence: US)
  Receive Date: 20210318
  Receipt Date: 20210917
  Transmission Date: 20211014
  Serious: No
  Sender: FDA-Public Use
  Company Number: US-CATALYST PHARMACEUTICALS, INC-2021CAT00031

PATIENT
  Age: 69 Year
  Sex: Female
  Weight: 85.26 kg

DRUGS (24)
  1. PFIZER?BIONTECH COVID?19 VACCINE [Suspect]
     Active Substance: TOZINAMERAN
     Dosage: UNK
     Dates: start: 20210310, end: 20210310
  2. PROTONIX [Concomitant]
     Active Substance: PANTOPRAZOLE SODIUM
  3. BENICAR [Concomitant]
     Active Substance: OLMESARTAN MEDOXOMIL
  4. FIRDAPSE [Suspect]
     Active Substance: AMIFAMPRIDINE PHOSPHATE
     Dosage: 20 MG, 3X/DAY
     Route: 048
     Dates: start: 2021
  5. MESTINON [Suspect]
     Active Substance: PYRIDOSTIGMINE BROMIDE
     Dosage: UNK, 3X/DAY
  6. MULTIVITAMIN [Concomitant]
     Active Substance: VITAMINS
  7. COLACE [Concomitant]
     Active Substance: DOCUSATE SODIUM
  8. SENNA [Concomitant]
     Active Substance: SENNA LEAF\SENNOSIDES\SENNOSIDES A AND B
  9. FIRDAPSE [Suspect]
     Active Substance: AMIFAMPRIDINE PHOSPHATE
     Dosage: 20 MG TOTAL DAILY DOSE
     Route: 048
     Dates: start: 202101, end: 202101
  10. FIRDAPSE [Suspect]
     Active Substance: AMIFAMPRIDINE PHOSPHATE
     Dosage: 10 MG, 1X/DAY IN THE EVENING
     Route: 048
     Dates: start: 2021, end: 202102
  11. UNSPECIFIED LAXATIVES [Concomitant]
     Active Substance: UNSPECIFIED INGREDIENT
  12. FIRDAPSE [Suspect]
     Active Substance: AMIFAMPRIDINE PHOSPHATE
     Dosage: 20 MG, 3X/DAY
     Route: 048
     Dates: start: 20210223, end: 2021
  13. FIRDAPSE [Suspect]
     Active Substance: AMIFAMPRIDINE PHOSPHATE
     Dosage: 20 MG, 3X/DAY
     Route: 048
     Dates: start: 2021, end: 2021
  14. FIRDAPSE [Suspect]
     Active Substance: AMIFAMPRIDINE PHOSPHATE
     Dosage: 15 MG, 2X/DAY IN THE MORNING AND AFTERNOON
     Route: 048
     Dates: start: 2021, end: 2021
  15. FIRDAPSE [Suspect]
     Active Substance: AMIFAMPRIDINE PHOSPHATE
     Indication: MYASTHENIC SYNDROME
     Dosage: 5 MG, 3X/DAY
     Route: 048
     Dates: start: 202101, end: 202101
  16. FIRDAPSE [Suspect]
     Active Substance: AMIFAMPRIDINE PHOSPHATE
     Dosage: 15 MG, 3X/DAY
     Route: 048
     Dates: start: 202102, end: 20210222
  17. MESTINON [Suspect]
     Active Substance: PYRIDOSTIGMINE BROMIDE
     Dosage: UNK, 1X/DAY (NIGHTTIME)
  18. UNSPECIFIED BLOOD PRESSURE MEDICATION [Concomitant]
     Active Substance: UNSPECIFIED INGREDIENT
  19. PROZAC [Concomitant]
     Active Substance: FLUOXETINE HYDROCHLORIDE
  20. CELLCEPT [Suspect]
     Active Substance: MYCOPHENOLATE MOFETIL\MYCOPHENOLATE MOFETIL HYDROCHLORIDE
     Dosage: UNK
  21. LANSOPRAZOLE. [Concomitant]
     Active Substance: LANSOPRAZOLE
  22. FIRDAPSE [Suspect]
     Active Substance: AMIFAMPRIDINE PHOSPHATE
     Dosage: 15 MG, 1X/DAY
     Route: 048
     Dates: start: 202101, end: 202101
  23. FIRDAPSE [Suspect]
     Active Substance: AMIFAMPRIDINE PHOSPHATE
     Dosage: 10 MG, 2X/DAY
     Route: 048
     Dates: start: 202101, end: 202101
  24. IVIG [Suspect]
     Active Substance: HUMAN IMMUNOGLOBULIN G
     Dosage: 3 DAYS IN A ROW ONCE EVERY 4 WEEKS
     Route: 042

REACTIONS (15)
  - Muscle spasms [Unknown]
  - Back pain [Unknown]
  - Dizziness [Not Recovered/Not Resolved]
  - Myalgia [Not Recovered/Not Resolved]
  - Weight decreased [Unknown]
  - Paraesthesia [Recovered/Resolved]
  - Abdominal discomfort [Recovering/Resolving]
  - Headache [Not Recovered/Not Resolved]
  - Electrocardiogram QRS complex prolonged [Unknown]
  - Hepatic enzyme increased [Not Recovered/Not Resolved]
  - Fatigue [Not Recovered/Not Resolved]
  - Rash [Recovering/Resolving]
  - Hypoaesthesia [Not Recovered/Not Resolved]
  - Arthralgia [Unknown]
  - Nausea [Not Recovered/Not Resolved]

NARRATIVE: CASE EVENT DATE: 2021
